FAERS Safety Report 11887883 (Version 1)
Quarter: 2016Q1

REPORT INFORMATION
  Report Type: Spontaneous
  Country: BR (occurrence: BR)
  Receive Date: 20160105
  Receipt Date: 20160105
  Transmission Date: 20160526
  Serious: Yes (Other)
  Sender: FDA-Public Use
  Company Number: BR-ACCORD-036532

PATIENT
  Age: 53 Year
  Sex: Female
  Weight: 78.4 kg

DRUGS (7)
  1. RANITIDINE [Concomitant]
     Active Substance: RANITIDINE\RANITIDINE HYDROCHLORIDE
     Dosage: STRENGTH: 50MG/2ML ?1 AMPOULE??DAILY DOSAGE: 1 AMPOULE
     Route: 042
     Dates: start: 20151216, end: 20151216
  2. CISPLATIN. [Suspect]
     Active Substance: CISPLATIN
     Indication: ADENOCARCINOMA
     Dosage: DOSE: 50 MG/M2 (90 MG) EVERY 21 DAYS 5 CYCLES.
     Dates: start: 20130326
  3. ONDANSETRON [Concomitant]
     Active Substance: ONDANSETRON
     Route: 042
     Dates: start: 20151216, end: 20151216
  4. DIPHENHYDRAMINE. [Concomitant]
     Active Substance: DIPHENHYDRAMINE
     Dosage: DIPHENHYDRAMINE+ S. F. 100ML??DAILY DOSAGE: 1 AMPOULE
     Route: 042
     Dates: start: 20151216, end: 20151216
  5. DEXAMETHASONE. [Concomitant]
     Active Substance: DEXAMETHASONE
     Route: 042
     Dates: start: 20151216, end: 20151216
  6. PACLITAXEL/PACLITAXEL LIPOSOME [Suspect]
     Active Substance: PACLITAXEL
     Indication: ADENOCARCINOMA OF THE CERVIX
  7. CARBOPLATIN. [Suspect]
     Active Substance: CARBOPLATIN
     Indication: ADENOCARCINOMA OF THE CERVIX

REACTIONS (16)
  - Tachycardia [Recovered/Resolved]
  - Discomfort [Recovered/Resolved]
  - Oedema peripheral [Unknown]
  - Pruritus [Recovered/Resolved]
  - Choking sensation [Recovered/Resolved]
  - Nausea [Recovering/Resolving]
  - Drug intolerance [Unknown]
  - Erythema [Recovered/Resolved]
  - Vomiting [Recovered/Resolved]
  - Off label use [Unknown]
  - Dyspnoea [Recovered/Resolved]
  - Hypertension [Recovered/Resolved]
  - Hyperaemia [Recovered/Resolved]
  - Deep vein thrombosis [Unknown]
  - Neutropenia [Unknown]
  - Back pain [Recovered/Resolved]

NARRATIVE: CASE EVENT DATE: 20140120
